FAERS Safety Report 11176788 (Version 2)
Quarter: 2015Q3

REPORT INFORMATION
  Report Type: Spontaneous
  Country: US (occurrence: US)
  Receive Date: 20150610
  Receipt Date: 20150810
  Transmission Date: 20151125
  Serious: No
  Sender: FDA-Public Use
  Company Number: US-009507513-1506USA003661

PATIENT
  Sex: Female

DRUGS (1)
  1. JANUVIA [Suspect]
     Active Substance: SITAGLIPTIN PHOSPHATE

REACTIONS (5)
  - Tooth loss [Unknown]
  - Adverse event [Unknown]
  - Ageusia [Unknown]
  - Chemotherapy [Unknown]
  - Visual impairment [Unknown]
